FAERS Safety Report 7651662-7 (Version None)
Quarter: 2011Q3

REPORT INFORMATION
  Report Type: 
  Country: None (occurrence: None)
  Receive Date: 20110802
  Receipt Date: 20110728
  Transmission Date: 20111222
  Serious: Yes (Hospitalization)
  Sender: FDA-Public Use
  Company Number: FR-ABBOTT-10P-056-0691892-00

PATIENT
  Sex: Female

DRUGS (9)
  1. HYDREA [Suspect]
     Indication: ESSENTIAL THROMBOCYTHAEMIA
     Dosage: 6 DOSAGE FORMS OF 500MG PER ORAL DAILY
     Dates: start: 20100930, end: 20101007
  2. ACETAMINOPHEN [Concomitant]
     Indication: PRODUCT USED FOR UNKNOWN INDICATION
  3. HAVLANE [Concomitant]
     Indication: PRODUCT USED FOR UNKNOWN INDICATION
  4. INNOHEP [Concomitant]
     Indication: PRODUCT USED FOR UNKNOWN INDICATION
  5. VERCYTE [Suspect]
     Indication: ESSENTIAL THROMBOCYTHAEMIA
     Route: 048
     Dates: start: 20101012, end: 20101021
  6. FENOFIBRATE [Concomitant]
     Indication: PRODUCT USED FOR UNKNOWN INDICATION
     Route: 048
  7. HYDREA [Suspect]
     Route: 048
     Dates: start: 20101008, end: 20101021
  8. RAMIPRIL [Concomitant]
     Indication: PRODUCT USED FOR UNKNOWN INDICATION
     Route: 048
  9. IMODIUM [Concomitant]
     Indication: PRODUCT USED FOR UNKNOWN INDICATION

REACTIONS (1)
  - PANCYTOPENIA [None]
